FAERS Safety Report 7750259-8 (Version None)
Quarter: 2011Q3

REPORT INFORMATION
  Report Type: 
  Country: None (occurrence: None)
  Receive Date: 20110914
  Receipt Date: 20110913
  Transmission Date: 20111222
  Serious: Yes (Death)
  Sender: FDA-Public Use
  Company Number: VE-PFIZER INC-2011201944

PATIENT
  Age: 82 Year
  Sex: Female

DRUGS (4)
  1. NORVASC [Concomitant]
     Dosage: UNK
     Dates: end: 20100101
  2. LERCANIDIPINE [Concomitant]
     Dosage: UNK
     Dates: end: 20100101
  3. LIPITOR [Suspect]
     Indication: HYPERCHOLESTEROLAEMIA
     Dosage: UNK, 1X/DAY
     Route: 048
     Dates: start: 20090101, end: 20100101
  4. PLAVIX [Concomitant]
     Dosage: UNK
     Dates: end: 20100101

REACTIONS (1)
  - RESPIRATORY ARREST [None]
